FAERS Safety Report 12305727 (Version 1)
Quarter: 2016Q2

REPORT INFORMATION
  Report Type: Report from Study
  Country: DE (occurrence: DE)
  Receive Date: 20160426
  Receipt Date: 20160426
  Transmission Date: 20160815
  Serious: Yes (Death, Hospitalization)
  Sender: FDA-Public Use
  Company Number: DE-CELGENEUS-DEU-2015106766

PATIENT
  Age: 71 Year
  Sex: Male

DRUGS (2)
  1. ABRAXANE [Suspect]
     Active Substance: PACLITAXEL
     Indication: PANCREATIC CARCINOMA METASTATIC
     Dosage: 125 MILLIGRAM/SQ. METER
     Route: 065
     Dates: start: 20150507, end: 201509
  2. GEMCITABINE [Suspect]
     Active Substance: GEMCITABINE\GEMCITABINE HYDROCHLORIDE
     Indication: PANCREATIC CARCINOMA METASTATIC
     Route: 065
     Dates: start: 20150507

REACTIONS (8)
  - Death [Fatal]
  - Rash [Recovered/Resolved]
  - Conjunctivitis [Recovered/Resolved]
  - Polyneuropathy [Not Recovered/Not Resolved]
  - Inflammatory marker increased [Recovered/Resolved]
  - Cough [Recovered/Resolved]
  - Oedema [Recovered/Resolved]
  - Pyrexia [Recovered/Resolved]

NARRATIVE: CASE EVENT DATE: 20150902
